FAERS Safety Report 5693805-0 (Version None)
Quarter: 2008Q2

REPORT INFORMATION
  Report Type: 
  Country: None (occurrence: None)
  Receive Date: 20080403
  Receipt Date: 20080331
  Transmission Date: 20081010
  Serious: Yes (Hospitalization)
  Sender: FDA-Public Use
  Company Number: US-BRISTOL-MYERS SQUIBB COMPANY-14075667

PATIENT
  Age: 57 Year
  Sex: Female
  Weight: 113 kg

DRUGS (14)
  1. ORENCIA [Suspect]
     Indication: RHEUMATOID ARTHRITIS
     Dosage: DURATION OF ADMINISTRATION - 30 MINS
     Route: 042
     Dates: start: 20070201, end: 20080102
  2. GLIPIZIDE [Concomitant]
  3. AMILORIDE HCL + HCTZ [Concomitant]
     Dosage: DOSAGE FORM = 25/50MG
  4. AMITRIPTYLINE HCL [Concomitant]
  5. FOLIC ACID [Concomitant]
  6. PLAVIX [Concomitant]
  7. METHOTREXATE [Concomitant]
  8. LIPITOR [Concomitant]
  9. PREDNISONE [Concomitant]
  10. PRILOSEC [Concomitant]
  11. CITALOPRAM [Concomitant]
  12. ALTACE [Concomitant]
  13. TOPROL-XL [Concomitant]
  14. LORAZEPAM [Concomitant]

REACTIONS (4)
  - DYSARTHRIA [None]
  - FACIAL PALSY [None]
  - GAIT DISTURBANCE [None]
  - HEMIPARESIS [None]
